FAERS Safety Report 19395544 (Version 2)
Quarter: 2021Q2

REPORT INFORMATION
  Report Type: Spontaneous
  Country: US (occurrence: US)
  Receive Date: 20210609
  Receipt Date: 20210616
  Transmission Date: 20210717
  Serious: No
  Sender: FDA-Public Use
  Company Number: US-SA-2021SA189643

PATIENT
  Sex: Female

DRUGS (3)
  1. DUPIXENT [Suspect]
     Active Substance: DUPILUMAB
     Indication: ASTHMA
     Dosage: 300 MG, QOW
     Route: 058
  2. COVID?19 VACCINE NOS. [Suspect]
     Active Substance: COVID-19 VACCINE NOS
     Indication: COVID-19 IMMUNISATION
     Dosage: UNK
     Dates: start: 20210419, end: 20210419
  3. ARNUITY ELLIPTA [Concomitant]
     Active Substance: FLUTICASONE FUROATE

REACTIONS (12)
  - Chills [Unknown]
  - Oesophageal disorder [Unknown]
  - Pain [Unknown]
  - Pain in extremity [Not Recovered/Not Resolved]
  - Vomiting [Unknown]
  - Injection site erythema [Not Recovered/Not Resolved]
  - Adverse event [Unknown]
  - Influenza like illness [Unknown]
  - Hypersensitivity [Unknown]
  - Chest pain [Unknown]
  - Feeling abnormal [Unknown]
  - Skin disorder [Unknown]
